FAERS Safety Report 5370846-4 (Version None)
Quarter: 2007Q2

REPORT INFORMATION
  Report Type: 
  Country: None (occurrence: None)
  Receive Date: 20070618
  Receipt Date: 20070306
  Transmission Date: 20071010
  Serious: Yes (Hospitalization)
  Sender: FDA-Public Use
  Company Number: PHEH2006US15280

PATIENT
  Age: 49 Year
  Sex: Female

DRUGS (11)
  1. GLEEVEC [Suspect]
     Indication: CHRONIC MYELOID LEUKAEMIA
     Dosage: 400 MG, QD, ORAL
     Route: 048
     Dates: start: 20061101
  2. SYNTHROID [Concomitant]
  3. FLUTICASONE PROPIONATE [Concomitant]
  4. FLUTICASONE PROPIONATE W/SALMETEROL (FLUTICASONE PROPIONATE, SALMETERO [Concomitant]
  5. ALBUTEROL [Concomitant]
  6. EFFEXOR [Concomitant]
  7. NEXIUM [Concomitant]
  8. COMPAZINE [Concomitant]
  9. HYDROZYZINE (HYDROZYZINE) [Concomitant]
  10. MS CONTIN [Concomitant]
  11. MORPHINE SULFATE [Concomitant]

REACTIONS (5)
  - CONTUSION [None]
  - ECCHYMOSIS [None]
  - OEDEMA PERIPHERAL [None]
  - PAIN IN EXTREMITY [None]
  - SOFT TISSUE HAEMORRHAGE [None]
